FAERS Safety Report 5523632-6 (Version None)
Quarter: 2007Q4

REPORT INFORMATION
  Report Type: 
  Country: None (occurrence: None)
  Receive Date: 20071121
  Receipt Date: 20071114
  Transmission Date: 20080405
  Serious: Yes (Other)
  Sender: FDA-Public Use
  Company Number: US-MERCK-0709USA04550

PATIENT
  Age: 54 Year
  Sex: Female

DRUGS (3)
  1. ZOCOR [Suspect]
     Indication: HYPERLIPIDAEMIA
     Route: 048
     Dates: start: 20050320, end: 20050801
  2. ZOCOR [Suspect]
     Route: 048
     Dates: start: 20050801, end: 20070101
  3. CRESTOR [Concomitant]
     Indication: HYPERLIPIDAEMIA
     Route: 065
     Dates: end: 20060901

REACTIONS (1)
  - BREAST CANCER [None]
